FAERS Safety Report 15557949 (Version 3)
Quarter: 2019Q1

REPORT INFORMATION
  Report Type: Spontaneous
  Country: KR (occurrence: KR)
  Receive Date: 20181027
  Receipt Date: 20190128
  Transmission Date: 20190417
  Serious: Yes (Death, Other)
  Sender: FDA-Public Use
  Company Number: KR-009507513-1810KOR010694

PATIENT
  Sex: Female

DRUGS (14)
  1. LASIX [Concomitant]
     Active Substance: FUROSEMIDE
     Dosage: UNK
     Dates: start: 20180814, end: 20180930
  2. HEPARIN SODIUM. [Concomitant]
     Active Substance: HEPARIN SODIUM
     Dosage: UNK
     Dates: start: 20180814, end: 20180930
  3. POTASSIUM CHLORIDE DAIHAN [Concomitant]
     Dosage: 1000 IU (20ML)
     Dates: start: 20180814, end: 20180930
  4. FRAVASOL [Concomitant]
     Dosage: UNK
     Dates: start: 20180814, end: 20180930
  5. YUHAN DEXAMETHASONE (DEXAMETHASONE SODIUM PHOSPHATE) [Concomitant]
     Dosage: UNK
     Dates: start: 20180814, end: 20180930
  6. SODIUM CHLORIDE. [Concomitant]
     Active Substance: SODIUM CHLORIDE
     Dosage: UNK
     Dates: start: 20180814, end: 20180930
  7. ESBIX [Concomitant]
     Dosage: UNK
     Dates: start: 20180814, end: 20180930
  8. INVANZ [Concomitant]
     Active Substance: ERTAPENEM SODIUM
     Dosage: UNK
     Dates: start: 20180814, end: 20180930
  9. KEYTRUDA [Suspect]
     Active Substance: PEMBROLIZUMAB
     Indication: CHOLANGIOCARCINOMA
     Dosage: UNK
     Dates: start: 20180814, end: 20180930
  10. DEXTROSE. [Concomitant]
     Active Substance: DEXTROSE
     Dosage: UNK
     Dates: start: 20180814, end: 20180930
  11. EGAFUSIN [Concomitant]
     Dosage: UNK
     Dates: start: 20180814, end: 20180930
  12. FRAGMIN [Concomitant]
     Active Substance: DALTEPARIN SODIUM
     Dosage: UNK
     Dates: start: 20180814, end: 20180930
  13. DENOGAN [Concomitant]
     Active Substance: PROPACETAMOL HYDROCHLORIDE
     Dosage: UNK
     Dates: start: 20180814, end: 20180930
  14. KEROMIN [Concomitant]
     Dosage: UNK
     Dates: start: 20180814, end: 20180930

REACTIONS (2)
  - Product use in unapproved indication [Unknown]
  - Malignant neoplasm progression [Fatal]

NARRATIVE: CASE EVENT DATE: 2018
